FAERS Safety Report 17951449 (Version 9)
Quarter: 2022Q1

REPORT INFORMATION
  Report Type: Report from Study
  Country: CO (occurrence: CO)
  Receive Date: 20200626
  Receipt Date: 20220325
  Transmission Date: 20220423
  Serious: Yes (Life-Threatening, Hospitalization, Other)
  Sender: FDA-Public Use
  Company Number: NVSC2020CO001090

PATIENT
  Age: 51 Year
  Sex: Female
  Weight: 117 kg

DRUGS (8)
  1. ELTROMBOPAG OLAMINE [Suspect]
     Active Substance: ELTROMBOPAG OLAMINE
     Indication: Immune thrombocytopenia
     Dosage: 50 MG, QD
     Route: 048
     Dates: start: 201910
  2. ELTROMBOPAG OLAMINE [Suspect]
     Active Substance: ELTROMBOPAG OLAMINE
     Dosage: 50 MG, QOD
     Route: 048
  3. ELTROMBOPAG OLAMINE [Suspect]
     Active Substance: ELTROMBOPAG OLAMINE
     Dosage: 25 MG
     Route: 048
     Dates: start: 201912
  4. LOSARTAN [Suspect]
     Active Substance: LOSARTAN
     Indication: Hypertension
     Dosage: 50 MG, 2 IN THE MORNING AND ONE IN THE AFTERNOON SINCE 5 YEARS AGO AS OF 20 MAR 2020
     Route: 048
  5. FUROSEMIDE [Suspect]
     Active Substance: FUROSEMIDE
     Indication: Fluid retention
     Dosage: 40 MG, QD
     Route: 048
     Dates: start: 201908
  6. LEVOTHYROXINE [Concomitant]
     Active Substance: LEVOTHYROXINE
     Indication: Hypothyroidism
     Dosage: 200 MG, QD (IN THE MORNING) SINCE 17 YEARS AGO AS OF 20 MAR 2020
     Route: 048
  7. SPIRONOLACTONE [Concomitant]
     Active Substance: SPIRONOLACTONE
     Indication: Hypertension
     Dosage: 25 MG, BID SINCE 4 YEARS AGO AS OF 20 MAR 2020
     Route: 048
  8. NIFEDIPINE [Concomitant]
     Active Substance: NIFEDIPINE
     Indication: Hypertension
     Dosage: 30 MG, Q8H SINCE 5 YEARS AGO AS OF 20 MAR 2020
     Route: 048

REACTIONS (11)
  - Feeling abnormal [Unknown]
  - Illness [Unknown]
  - General physical health deterioration [Unknown]
  - Platelet count decreased [Unknown]
  - Platelet count increased [Recovered/Resolved]
  - Headache [Unknown]
  - Haemorrhage [Unknown]
  - Petechiae [Unknown]
  - Contusion [Unknown]
  - Product dose omission issue [Unknown]
  - Inappropriate schedule of product administration [Unknown]

NARRATIVE: CASE EVENT DATE: 20191201
